FAERS Safety Report 7645583-3 (Version None)
Quarter: 2011Q3

REPORT INFORMATION
  Report Type: 
  Country: None (occurrence: None)
  Receive Date: 20110729
  Receipt Date: 20110726
  Transmission Date: 20111222
  Serious: No
  Sender: FDA-Public Use
  Company Number: US-PFIZER INC-2011152045

PATIENT
  Age: 6 Month
  Sex: Male

DRUGS (1)
  1. PEDIATRIC ADVIL [Suspect]
     Dosage: UNK

REACTIONS (6)
  - DRUG INEFFECTIVE [None]
  - SCREAMING [None]
  - PAIN [None]
  - CRYING [None]
  - FEELING ABNORMAL [None]
  - PYREXIA [None]
